FAERS Safety Report 8822305 (Version 1)
Quarter: 2012Q4

REPORT INFORMATION
  Report Type: 
  Country: US (occurrence: US)
  Receive Date: 20121003
  Receipt Date: 20121003
  Transmission Date: 20130627
  Serious: Yes (Hospitalization)
  Sender: FDA-Public Use
  Company Number: US-BAYER-2012-101600

PATIENT
  Age: 33 Year
  Sex: Female

DRUGS (8)
  1. YASMIN [Suspect]
  2. ETODOLAC [Concomitant]
     Dosage: 400 mg, UNK
  3. VITAMIN D [Concomitant]
     Route: 048
  4. ABILIFY [Concomitant]
  5. CYCLOBENZAPRINE [Concomitant]
  6. LEXAPRO [Concomitant]
  7. TORADOL [Concomitant]
  8. MORPHINE [Concomitant]

REACTIONS (1)
  - Pulmonary embolism [None]
